FAERS Safety Report 5070327-1 (Version None)
Quarter: 2006Q3

REPORT INFORMATION
  Report Type: 
  Country: None (occurrence: None)
  Receive Date: 20060731
  Receipt Date: 20060718
  Transmission Date: 20061208
  Serious: Yes (Life-Threatening, Other)
  Sender: FDA-Public Use
  Company Number: 2006079533

PATIENT
  Age: 74 Year
  Sex: Female
  Weight: 48 kg

DRUGS (2)
  1. SULPERAZON (SULBACTAM, CEFOPERAZONE) [Suspect]
     Indication: PSEUDOMONAS INFECTION
     Dosage: 3 GRAM INTRAVENOUS
     Route: 042
     Dates: start: 20060530
  2. VANCOMYCIN [Concomitant]

REACTIONS (3)
  - CARDIAC FAILURE [None]
  - POST PROCEDURAL COMPLICATION [None]
  - SHOCK HAEMORRHAGIC [None]
